FAERS Safety Report 9507804 (Version 1)
Quarter: 2013Q1

REPORT INFORMATION
  Report Type: Spontaneous
  Country: US (occurrence: None)
  Receive Date: 20130305
  Receipt Date: 20130305
  Transmission Date: 20140127
  Serious: Yes (Hospitalization)
  Sender: FDA-Public Use
  Company Number: 163-21880-12050756

PATIENT
  Age: 54 Year
  Sex: Male
  Weight: 126 kg

DRUGS (5)
  1. REVLIMID (LENALIDOMIDE) (25 MILLIGRAM, CAPSULES) [Suspect]
     Indication: PLASMA CELL MYELOMA
     Dosage: 25 MG, QD D1-14, PO
     Route: 048
     Dates: start: 201111
  2. ACYCLOVIR (ACYCLOVIR) (UNKNOWN) [Concomitant]
  3. LORAZEPAM (LORAZEPAM) (UNKNOWN) [Concomitant]
  4. COMPAZINE (PROCHLORPERAZINE EDISYLATE) (UNKNOWN) [Concomitant]
  5. PRILOSEC (OMERPRAZOLE) (UNKNOWN) [Concomitant]

REACTIONS (1)
  - Pneumonia [None]
